FAERS Safety Report 5757613-4 (Version None)
Quarter: 2008Q2

REPORT INFORMATION
  Report Type: 
  Country: None (occurrence: None)
  Receive Date: 20080603
  Receipt Date: 20080523
  Transmission Date: 20081010
  Serious: Yes (Other)
  Sender: FDA-Public Use
  Company Number: JP-PFIZER INC-2008042109

PATIENT
  Age: 82 Year
  Sex: Female

DRUGS (9)
  1. EPLERENONE [Suspect]
     Indication: HYPERTENSION
  2. EPLERENONE [Suspect]
  3. VALSARTAN [Concomitant]
  4. TRIAZOLAM [Concomitant]
  5. FENOFIBRATE [Concomitant]
  6. FAMOTIDINE [Concomitant]
  7. URSODIOL [Concomitant]
  8. NIFEDIPINE [Concomitant]
  9. SLOW-K [Concomitant]
     Route: 048

REACTIONS (3)
  - COUGH [None]
  - EPISTAXIS [None]
  - RHINORRHOEA [None]
